FAERS Safety Report 25300684 (Version 1)
Quarter: 2025Q2

REPORT INFORMATION
  Report Type: Spontaneous
  Country: US (occurrence: US)
  Receive Date: 20250512
  Receipt Date: 20250512
  Transmission Date: 20250716
  Serious: Yes (Other)
  Sender: AKEBIA THERAPEUTICS
  Company Number: US-KERYX BIOPHARMACEUTICALS INC.-US-AKEB-25-000243

PATIENT

DRUGS (1)
  1. VADADUSTAT [Suspect]
     Active Substance: VADADUSTAT
     Indication: Product used for unknown indication
     Route: 065

REACTIONS (1)
  - Haemoglobin decreased [Unknown]
